FAERS Safety Report 6603069-9 (Version None)
Quarter: 2010Q1

REPORT INFORMATION
  Report Type: 
  Country: None (occurrence: None)
  Receive Date: 20100226
  Receipt Date: 20100219
  Transmission Date: 20100710
  Serious: Yes (Other)
  Sender: FDA-Public Use
  Company Number: PHHY2010JP10164

PATIENT
  Age: 10 Year
  Sex: Female

DRUGS (2)
  1. TEGRETOL [Suspect]
     Indication: ELECTROENCEPHALOGRAM ABNORMAL
     Dosage: UNK
     Route: 048
  2. TEGRETOL [Suspect]
     Dosage: 300 MG DAILY
     Route: 048

REACTIONS (2)
  - KNEE DEFORMITY [None]
  - KNEE OPERATION [None]
